FAERS Safety Report 4402747-X (Version None)
Quarter: 2004Q3

REPORT INFORMATION
  Report Type: 
  Country: None (occurrence: None)
  Receive Date: 20040721
  Receipt Date: 20040329
  Transmission Date: 20050211
  Serious: No
  Sender: FDA-Public Use
  Company Number: US-BRISTOL-MYERS SQUIBB COMPANY-12545497

PATIENT
  Age: 69 Year
  Sex: Female
  Weight: 79 kg

DRUGS (7)
  1. ESTRACE [Suspect]
     Indication: HORMONE REPLACEMENT THERAPY
     Route: 048
  2. HYZAAR [Concomitant]
     Route: 048
     Dates: start: 19950101
  3. LIPITOR [Concomitant]
     Dates: start: 20000101
  4. VITAMIN A [Concomitant]
  5. CALTRATE [Concomitant]
  6. VITAMIN C [Concomitant]
  7. VITAMIN E [Concomitant]

REACTIONS (1)
  - METRORRHAGIA [None]
